FAERS Safety Report 6968224-7 (Version None)
Quarter: 2010Q3

REPORT INFORMATION
  Report Type: 
  Country: None (occurrence: None)
  Receive Date: 20100901
  Receipt Date: 20100827
  Transmission Date: 20110219
  Serious: Yes (Hospitalization)
  Sender: FDA-Public Use
  Company Number: DSA_43458_2010

PATIENT
  Sex: Female

DRUGS (1)
  1. XENAZINE [Suspect]
     Indication: HUNTINGTON'S DISEASE
     Dosage: (12.5 MG TID, ORAL)
     Route: 048
     Dates: start: 20090501

REACTIONS (3)
  - DEPRESSION [None]
  - INTENTIONAL SELF-INJURY [None]
  - MENTAL DISORDER [None]
